FAERS Safety Report 4345750-0 (Version None)
Quarter: 2004Q2

REPORT INFORMATION
  Report Type: 
  Country: None (occurrence: None)
  Receive Date: 20040421
  Receipt Date: 20040402
  Transmission Date: 20050107
  Serious: Yes (Hospitalization)
  Sender: FDA-Public Use
  Company Number: DSA_24183_2004

PATIENT
  Sex: Male
  Weight: 3.4 kg

DRUGS (4)
  1. DICLOFENAC SODIUM [Suspect]
     Indication: INFLUENZA LIKE ILLNESS
     Dosage: 25 MG TID
  2. CEPHALEXIN MONOHYDRATE [Concomitant]
  3. CHLORPHENIRAMINE MALEATE [Concomitant]
  4. PHENSEDYL [Concomitant]

REACTIONS (13)
  - BRADYCARDIA FOETAL [None]
  - CAESAREAN SECTION [None]
  - COMPLICATIONS OF MATERNAL EXPOSURE TO THERAPEUTIC DRUGS [None]
  - CONGENITAL ATRIAL SEPTAL DEFECT [None]
  - CONGENITAL PULMONARY HYPERTENSION [None]
  - CYANOSIS NEONATAL [None]
  - DRUG EXPOSURE DURING PREGNANCY [None]
  - HYPERTROPHIC CARDIOMYOPATHY [None]
  - NEONATAL RESPIRATORY DISTRESS SYNDROME [None]
  - PATENT DUCTUS ARTERIOSUS [None]
  - SEPSIS [None]
  - TRICUSPID VALVE INCOMPETENCE [None]
  - VENTRICULAR HYPERTROPHY [None]
